FAERS Safety Report 5723370-0 (Version None)
Quarter: 2008Q2

REPORT INFORMATION
  Report Type: 
  Country: None (occurrence: None)
  Receive Date: 20080430
  Receipt Date: 20080312
  Transmission Date: 20081010
  Serious: No
  Sender: FDA-Public Use
  Company Number: US-BAYER-200817100NA

PATIENT
  Age: 8 Year
  Sex: Female
  Weight: 23 kg

DRUGS (2)
  1. MAGNEVIST [Suspect]
     Indication: NUCLEAR MAGNETIC RESONANCE IMAGING BRAIN
     Dosage: TOTAL DAILY DOSE: 5 ML  UNIT DOSE: 100 ML
     Route: 042
     Dates: start: 20080307, end: 20080307
  2. INTERFERON [Concomitant]
     Indication: MALIGNANT MELANOMA
     Route: 065

REACTIONS (1)
  - URTICARIA [None]
